FAERS Safety Report 9619677 (Version 2)
Quarter: 2013Q4

REPORT INFORMATION
  Report Type: Spontaneous
  Country: US (occurrence: US)
  Receive Date: 20131014
  Receipt Date: 20131014
  Transmission Date: 20140711
  Serious: Yes (Other)
  Sender: FDA-Public Use
  Company Number: US-ELI_LILLY_AND_COMPANY-US201309001066

PATIENT
  Sex: Male

DRUGS (2)
  1. HUMATROPE [Suspect]
     Indication: SURGERY
  2. HUMATROPE [Suspect]
     Indication: HYPOTHALAMO-PITUITARY DISORDER

REACTIONS (9)
  - Lung neoplasm malignant [Unknown]
  - Fatigue [Unknown]
  - Drug dose omission [Unknown]
  - Malaise [Unknown]
  - Confusional state [Unknown]
  - Feeling abnormal [Unknown]
  - Thyroid disorder [Unknown]
  - Blood testosterone abnormal [Unknown]
  - Pulmonary mycosis [Unknown]
